FAERS Safety Report 8315539-6 (Version None)
Quarter: 2012Q2

REPORT INFORMATION
  Report Type: 
  Country: None (occurrence: None)
  Receive Date: 20120426
  Receipt Date: 20120417
  Transmission Date: 20120825
  Serious: Yes (Hospitalization)
  Sender: FDA-Public Use
  Company Number: CA-COVIDIEN/TYCO HEALTHCARE/MALLINCKRODT-T201201509

PATIENT
  Age: 67 Year
  Sex: Female

DRUGS (1)
  1. SODIUM IODIDE I 131 [Suspect]
     Indication: THYROID NEOPLASM
     Dosage: 30 MCI
     Dates: start: 19730101, end: 19730101

REACTIONS (2)
  - TREATMENT FAILURE [None]
  - HYPERPARATHYROIDISM [None]
